FAERS Safety Report 7450940-4 (Version None)
Quarter: 2011Q2

REPORT INFORMATION
  Report Type: 
  Country: None (occurrence: None)
  Receive Date: 20110502
  Receipt Date: 20110430
  Transmission Date: 20111010
  Serious: No
  Sender: FDA-Public Use
  Company Number: US-PFIZER INC-2011093193

PATIENT
  Sex: Male
  Weight: 83.9 kg

DRUGS (7)
  1. VITAMIN D [Concomitant]
     Dosage: 1000 UNITS, UNK
  2. GLYBURIDE [Concomitant]
     Dosage: 1.25 MG, UNK
  3. GABAPENTIN [Suspect]
     Indication: NEUROPATHY PERIPHERAL
     Dosage: 300 MG, 2X/DAY
     Route: 048
  4. POTASSIUM [Concomitant]
     Dosage: 10 UNITS, UNK
  5. WARFARIN [Concomitant]
     Dosage: 5 MG, UNK
  6. METOPROLOL [Concomitant]
     Dosage: 25 MG, UNK
  7. SIMVASTATIN [Concomitant]
     Dosage: 40 MG, UNK

REACTIONS (1)
  - DIZZINESS [None]
